FAERS Safety Report 9702787 (Version 3)
Quarter: 2014Q4

REPORT INFORMATION
  Report Type: Spontaneous
  Country: US (occurrence: US)
  Receive Date: 20131121
  Receipt Date: 20141119
  Transmission Date: 20150529
  Serious: Yes (Other)
  Sender: FDA-Public Use
  Company Number: US-GLAXOSMITHKLINE-A1050491A

PATIENT
  Sex: Female

DRUGS (2)
  1. INSULIN [Concomitant]
     Active Substance: INSULIN NOS
     Indication: DIABETES MELLITUS
     Route: 065
  2. VERAMYST [Suspect]
     Active Substance: FLUTICASONE FUROATE
     Indication: RESPIRATORY DISORDER
     Dosage: 27.5 ?G, U
     Route: 065

REACTIONS (2)
  - Diabetes mellitus [Unknown]
  - Ill-defined disorder [Unknown]
